FAERS Safety Report 15272149 (Version 9)
Quarter: 2019Q2

REPORT INFORMATION
  Report Type: Report from Study
  Country: US (occurrence: US)
  Receive Date: 20180813
  Receipt Date: 20190404
  Transmission Date: 20190711
  Serious: Yes (Hospitalization, Disabling, Other)
  Sender: FDA-Public Use
  Company Number: US-AMGEN INC.-USASL2018110996

PATIENT
  Age: 34 Year
  Sex: Male
  Weight: 76.28 kg

DRUGS (53)
  1. METHYLPREDNISOLONE. [Concomitant]
     Active Substance: METHYLPREDNISOLONE
     Dosage: 4 MILLIGRAM, QWK
     Route: 048
     Dates: start: 20171031
  2. PROTRIPTYLINE [Concomitant]
     Active Substance: PROTRIPTYLINE
     Dosage: 40 MILLIGRAM, BID
     Route: 048
     Dates: start: 20160412
  3. TOPIRAMATE. [Concomitant]
     Active Substance: TOPIRAMATE
     Dosage: 25 MILLIGRAM, EVERY DAY AT BEDTIME/100 MILLIGRAM, BID
     Route: 048
     Dates: start: 20161223
  4. BUPROPION HYDROCHLORIDE XL [Concomitant]
     Active Substance: BUPROPION HYDROCHLORIDE
     Dosage: 150 MILLIGRAM, 300 MILLIGRAM
     Dates: start: 20160419
  5. DIAZEPAM. [Concomitant]
     Active Substance: DIAZEPAM
     Dosage: 5 MILLIGRAM
     Dates: start: 20170515
  6. DIPHENHYDRAMINE. [Concomitant]
     Active Substance: DIPHENHYDRAMINE
     Dosage: 1 MILLILITER EVERY WEEK BY INJECTION ROUTE
     Dates: start: 20160905
  7. GATIFLOXACIN. [Concomitant]
     Active Substance: GATIFLOXACIN
     Dosage: 0.5 PERCENTAGE, UNK
     Dates: start: 20180406
  8. HORIZANT [Concomitant]
     Active Substance: GABAPENTIN ENACARBIL
     Dosage: 600 MILLIGRAM, QD
     Route: 048
     Dates: start: 20180811
  9. MUPIROCIN. [Concomitant]
     Active Substance: MUPIROCIN
     Dosage: 2 PERCENTAGE, UNK
     Dates: start: 20150825
  10. AMOXICILLIN AND CLAVULANATE POTASSIUM [Concomitant]
     Active Substance: AMOXICILLIN\CLAVULANATE POTASSIUM
     Dosage: 875 MILLIGRAM / 125 MILLIGRAM
     Dates: start: 20170515
  11. DESIPRAMINE [Concomitant]
     Active Substance: DESIPRAMINE
     Dosage: 10 MILLIGRAM
     Dates: start: 20150821
  12. PREDNISOLONE ACETATE. [Concomitant]
     Active Substance: PREDNISOLONE ACETATE
     Dosage: 1 PERCENTAGE, UNK
     Dates: start: 20180406
  13. ZECUITY [Concomitant]
     Active Substance: SUMATRIPTAN SUCCINATE
     Dosage: 6.5 MILLIGRAM/4 HOUR (APPLY 1 PATCH UPPER ARM OR THIGH)
     Dates: start: 20160520
  14. ZOLPIDEM [Concomitant]
     Active Substance: ZOLPIDEM\ZOLPIDEM TARTRATE
     Dosage: 10 MILLIGRAM, QD (AT BED TIME)
     Route: 048
     Dates: start: 20170823
  15. ANASTROZOLE. [Concomitant]
     Active Substance: ANASTROZOLE
     Dosage: 1 MILLIGRAM
  16. CIPROFLOXACIN. [Concomitant]
     Active Substance: CIPROFLOXACIN
     Dosage: 500 MILLIGRAM
     Dates: start: 20180801
  17. DOXYCYCLINE HYCLATE. [Concomitant]
     Active Substance: DOXYCYCLINE HYCLATE
     Dosage: 100 MILLIGRAM
     Dates: start: 20180810
  18. FAMOTIDINE. [Concomitant]
     Active Substance: FAMOTIDINE
     Dosage: 40 MILLIGRAM
     Dates: start: 20151221
  19. GABAPENTIN. [Concomitant]
     Active Substance: GABAPENTIN
     Dosage: 100 MILLIGRAM, TID
     Route: 048
     Dates: start: 20181116
  20. MIDODRINE [Concomitant]
     Active Substance: MIDODRINE
     Dosage: 2.5 MILLIGRAM, TWICE DAILY/ 5 MILLIGRAM, QHS
     Route: 048
     Dates: start: 20160802
  21. NALBUPHINE [Concomitant]
     Active Substance: NALBUPHINE
     Dosage: 1 MILLILITER, QD, 2 MILLILITER, QD (BY INJECTION ROUTE)
     Dates: start: 20160629
  22. ONDANSETRON HCL [Concomitant]
     Active Substance: ONDANSETRON HYDROCHLORIDE
     Dosage: 4 MILLIGRAM/ 8 MILLIGRAM, UNK
     Dates: start: 20170601
  23. DIHYDROERGOTAMINE [Concomitant]
     Active Substance: DIHYDROERGOTAMINE
     Dosage: 0.5 MILLIGRAM/PUMP (4MILLIGRAM/MILLILITER), QD (AS NEEDED)
     Route: 045
     Dates: start: 20160512
  24. HYDROCODONE/ACETAMINOPHEN [Concomitant]
     Active Substance: ACETAMINOPHEN\HYDROCODONE
     Dosage: 10-325 MILLIGRAM
     Dates: start: 20160701
  25. ONZETRA [Concomitant]
     Active Substance: SUMATRIPTAN SUCCINATE
     Dosage: 11 MILLIGRAM, QD (SPRAY 1 NOSEPIECE INTO EACH NOSTRIL)
     Route: 045
     Dates: start: 20161102
  26. PANTOPRAZOLE [Concomitant]
     Active Substance: PANTOPRAZOLE
     Dosage: 40 MILLIGRAM
     Dates: start: 20180810
  27. PREDNISONE. [Concomitant]
     Active Substance: PREDNISONE
     Dosage: 20 MILLIGRAM, 10 MILLIGRAM, QD
     Route: 048
     Dates: start: 20160213
  28. PROMETHAZINE [Concomitant]
     Active Substance: PROMETHAZINE\PROMETHAZINE HYDROCHLORIDE
     Dosage: 25 MILLIGRAM, TID
     Route: 048
     Dates: start: 20181116
  29. RIZATRIPTAN. [Concomitant]
     Active Substance: RIZATRIPTAN
     Dosage: 10 MILLIGRAM, BID (AS NEEDED)
     Route: 048
     Dates: start: 20190222
  30. VERAPAMIL [Concomitant]
     Active Substance: VERAPAMIL HYDROCHLORIDE
     Dosage: 120 MILLIGRAM, QD
     Route: 048
     Dates: start: 20151110
  31. AMITRIPTYLINE [Concomitant]
     Active Substance: AMITRIPTYLINE
     Dosage: 25 MILLIGRAM, QD (2 TABLET)
     Route: 048
     Dates: start: 20160407
  32. AZITHROMYCIN ANHYDROUS. [Concomitant]
     Active Substance: AZITHROMYCIN ANHYDROUS
     Dosage: 500 MILLIGRAM, 250 MILLIGRAM, UNK
     Dates: start: 20180810
  33. METOCLOPRAMIDE. [Concomitant]
     Active Substance: METOCLOPRAMIDE
     Dosage: 2 MILLILITER EVERY WEEK BY INJECTION ROUTE/ 10 MILLIGRAM, TWICE DAILY (AS NEEDED)
     Route: 048
     Dates: start: 20171031
  34. ONDANSETRON [Concomitant]
     Active Substance: ONDANSETRON
     Dosage: 4 MILLIGRAM, TID (AS NEEDED)
     Route: 048
     Dates: start: 20181116
  35. SUMATRIPTAN. [Concomitant]
     Active Substance: SUMATRIPTAN
     Dosage: 1 MILLILITER, AS NECESSARY
     Route: 058
     Dates: start: 20160410
  36. BOTOX [Concomitant]
     Active Substance: ONABOTULINUMTOXINA
     Indication: MIGRAINE
     Dosage: 155 UNITS INTO THE MUSCLE
     Dates: start: 20180131
  37. BUTALBITAL AND ACETAMINOPHEN [Concomitant]
     Active Substance: ACETAMINOPHEN\BUTALBITAL
     Dosage: 50-325 MILLIGRAM, TID, BID (AS NEEDED) TABLET AND CAPSULE
     Route: 048
     Dates: start: 20160107
  38. CAFFEINE. [Concomitant]
     Active Substance: CAFFEINE
     Dosage: 200 MILLIGRAM, BID (AS NEEDED)
     Route: 048
     Dates: start: 20160620
  39. DIVALPROEX [Concomitant]
     Active Substance: DIVALPROEX SODIUM
     Dosage: 250 MILLIGRAM, TWICE A DAY (1 TABLET, THEN 2 TABLET)
     Route: 048
     Dates: start: 20160915
  40. MODAFINIL. [Concomitant]
     Active Substance: MODAFINIL
     Dosage: 100 MILLIGRAM, QD
     Route: 048
     Dates: start: 20181016
  41. NAMENDA [Concomitant]
     Active Substance: MEMANTINE HYDROCHLORIDE
     Dosage: 28 MILLIGRAM, QD
     Route: 048
     Dates: start: 20160805
  42. NORTRIPTYLINE [Concomitant]
     Active Substance: NORTRIPTYLINE
     Dosage: 10 MILLIGRAM
     Dates: start: 20141205
  43. OXYCODONE AND ACETAMINOPHEN [Concomitant]
     Active Substance: ACETAMINOPHEN\OXYCODONE HYDROCHLORIDE
     Dosage: 7.5-325 MILLIGRAM, UNK
     Dates: start: 20170601
  44. SUCRALFATE. [Concomitant]
     Active Substance: SUCRALFATE
     Dosage: 1 GRAM
     Dates: start: 20160506
  45. AMOXICILLIN. [Concomitant]
     Active Substance: AMOXICILLIN
     Dosage: 500 MILLIGRAM
     Dates: start: 20170629
  46. FLUDROCORTISONE [Concomitant]
     Active Substance: FLUDROCORTISONE
     Dosage: 0.1 MILLIGRAM, QD
     Route: 048
     Dates: start: 20160725
  47. KETOROLAC [Concomitant]
     Active Substance: KETOROLAC\KETOROLAC TROMETHAMINE
     Dosage: 60 MILLIGRAM/2 MILLILITER, QD
     Route: 030
     Dates: start: 20160621
  48. MEMANTINE. [Concomitant]
     Active Substance: MEMANTINE
     Dosage: 10 MILLIGRAM, 5 MILLIGRAM, BID
     Route: 048
     Dates: start: 20151125
  49. PAROXETINE. [Concomitant]
     Active Substance: PAROXETINE
     Dosage: 10 MILLIGRAM
     Dates: start: 20150206
  50. AIMOVIG [Suspect]
     Active Substance: ERENUMAB-AOOE
     Indication: MIGRAINE
     Dosage: 140 MILLIGRAM, QMO
     Route: 065
     Dates: start: 20180720
  51. CAMBIA [Concomitant]
     Active Substance: DICLOFENAC POTASSIUM
     Dosage: 50 MILLIGRAM, QD (1 PACKET AS NEEDED)
     Dates: start: 20151216
  52. FAMCICLOVIR. [Concomitant]
     Active Substance: FAMCICLOVIR
     Dosage: 250 MILLIGRAM
     Dates: start: 20181108
  53. LEVOCETIRIZINE [Concomitant]
     Active Substance: LEVOCETIRIZINE
     Dosage: 5 MILLIGRAM
     Dates: start: 20150820

REACTIONS (15)
  - Pancytopenia [Recovering/Resolving]
  - Pneumonia [Recovered/Resolved]
  - Blood pressure decreased [Unknown]
  - Fatigue [Not Recovered/Not Resolved]
  - Occipital neuralgia [Unknown]
  - Intracranial hypotension [Unknown]
  - Hypophagia [Recovered/Resolved]
  - Sinusitis [Unknown]
  - Sepsis [Recovered/Resolved]
  - Disturbance in attention [Unknown]
  - Gastrointestinal haemorrhage [Unknown]
  - Asthenia [Not Recovered/Not Resolved]
  - Cervical radiculopathy [Unknown]
  - Hepatitis [Recovering/Resolving]
  - Migraine [Unknown]

NARRATIVE: CASE EVENT DATE: 2018
